FAERS Safety Report 24278799 (Version 3)
Quarter: 2025Q1

REPORT INFORMATION
  Report Type: Spontaneous
  Country: US (occurrence: US)
  Receive Date: 20240903
  Receipt Date: 20250310
  Transmission Date: 20250409
  Serious: No
  Sender: KARYOPHARM THERAPEUTICS
  Company Number: US-KARYOPHARM-2024KPT001335

PATIENT

DRUGS (30)
  1. XPOVIO [Suspect]
     Active Substance: SELINEXOR
     Indication: Plasma cell myeloma
     Dosage: 20 MG, WEEKLY
     Route: 048
     Dates: start: 20210113
  2. ABILIFY [Concomitant]
     Active Substance: ARIPIPRAZOLE
  3. ACYCLOVIR [Concomitant]
     Active Substance: ACYCLOVIR
  4. ALPRAZOLAM [Concomitant]
     Active Substance: ALPRAZOLAM
  5. AMBIEN [Concomitant]
     Active Substance: ZOLPIDEM TARTRATE
  6. ASPIRIN [Concomitant]
     Active Substance: ASPIRIN
  7. DEXAMETHASONE [Concomitant]
     Active Substance: DEXAMETHASONE
  8. DEXILANT [Concomitant]
     Active Substance: DEXLANSOPRAZOLE
  9. FLUOXETINE [Concomitant]
     Active Substance: FLUOXETINE HYDROCHLORIDE
  10. LEVOTHYROXINE [Concomitant]
     Active Substance: LEVOTHYROXINE
  11. LOPERAMIDE HYDROCHLORIDE [Concomitant]
     Active Substance: LOPERAMIDE HYDROCHLORIDE
  12. LOTEMAX [Concomitant]
     Active Substance: LOTEPREDNOL ETABONATE
  13. METOPROLOL [Concomitant]
     Active Substance: METOPROLOL
  14. MORPHINE [Concomitant]
     Active Substance: MORPHINE
  15. NINLARO [Concomitant]
     Active Substance: IXAZOMIB CITRATE
  16. NITROSTAT [Concomitant]
     Active Substance: NITROGLYCERIN
  17. OLANZAPINE [Concomitant]
     Active Substance: OLANZAPINE
  18. ONDANSETRON [Concomitant]
     Active Substance: ONDANSETRON
  19. PERCOCET [Concomitant]
     Active Substance: ACETAMINOPHEN\OXYCODONE HYDROCHLORIDE
  20. PREDNISONE [Concomitant]
     Active Substance: PREDNISONE
  21. PROCHLORPERAZINE [Concomitant]
     Active Substance: PROCHLORPERAZINE
  22. CHOLESTYRAMINE [Concomitant]
     Active Substance: CHOLESTYRAMINE
  23. RAMELTEON [Concomitant]
     Active Substance: RAMELTEON
  24. RESTASIS [Concomitant]
     Active Substance: CYCLOSPORINE
  25. ROSUVASTATIN [Concomitant]
     Active Substance: ROSUVASTATIN
  26. SYSTANE (HYPROMELLOSE 2910 (4000 MPA.S)) [Concomitant]
     Active Substance: HYPROMELLOSE 2910 (4000 MPA.S)
  27. VALACYCLOVIR [Concomitant]
     Active Substance: VALACYCLOVIR HYDROCHLORIDE
  28. VELCADE [Concomitant]
     Active Substance: BORTEZOMIB
  29. AZELASTINE HYDROCHLORIDE\FLUTICASONE PROPIONATE [Concomitant]
     Active Substance: AZELASTINE HYDROCHLORIDE\FLUTICASONE PROPIONATE
  30. INTRAROSA [Concomitant]
     Active Substance: PRASTERONE

REACTIONS (3)
  - Migraine [Unknown]
  - Nausea [Not Recovered/Not Resolved]
  - Vomiting [Not Recovered/Not Resolved]

NARRATIVE: CASE EVENT DATE: 20250130
